FAERS Safety Report 13926354 (Version 1)
Quarter: 2017Q3

REPORT INFORMATION
  Report Type: Spontaneous
  Country: US (occurrence: US)
  Receive Date: 20170831
  Receipt Date: 20170831
  Transmission Date: 20171127
  Serious: No
  Sender: FDA-Public Use
  Company Number: US-BAYER-2017-166000

PATIENT
  Sex: Female

DRUGS (1)
  1. FINACEA [Suspect]
     Active Substance: AZELAIC ACID
     Indication: PROPHYLAXIS
     Dosage: UNK

REACTIONS (8)
  - Pruritus [None]
  - Adverse event [None]
  - Rash macular [None]
  - Product use in unapproved indication [None]
  - Paraesthesia [None]
  - Erythema [None]
  - Burning sensation [None]
  - Skin discomfort [None]
